FAERS Safety Report 10222805 (Version 1)
Quarter: 2014Q2

REPORT INFORMATION
  Report Type: Spontaneous
  Country: US (occurrence: US)
  Receive Date: 20140606
  Receipt Date: 20140606
  Transmission Date: 20141212
  Serious: Yes (Hospitalization, Other)
  Sender: FDA-Public Use
  Company Number: US-RB-068179-14

PATIENT
  Age: 57 Year
  Sex: Female

DRUGS (3)
  1. SUBOXONE FILM [Suspect]
     Indication: PRODUCT USED FOR UNKNOWN INDICATION
     Dosage: SUBOXONE FILM; STOPPED AGAINST PHYSICIAN ADVICE
     Route: 065
  2. SUBOXONE FILM [Suspect]
     Dosage: SUBOXONE FILM
     Route: 065
  3. VIVITROL [Suspect]
     Indication: PRODUCT USED FOR UNKNOWN INDICATION
     Dosage: DOSING DETAILS UNKNOWN
     Route: 065

REACTIONS (3)
  - Intentional underdose [Recovered/Resolved]
  - Drug withdrawal syndrome [Unknown]
  - Aphasia [Unknown]
